FAERS Safety Report 25282162 (Version 1)
Quarter: 2025Q2

REPORT INFORMATION
  Report Type: Report from Study
  Country: RO (occurrence: RO)
  Receive Date: 20250508
  Receipt Date: 20250508
  Transmission Date: 20250717
  Serious: Yes (Other)
  Sender: AMGEN
  Company Number: RO-AMGEN-ROUSL2025084629

PATIENT
  Age: 77 Year
  Sex: Female
  Weight: 42 kg

DRUGS (2)
  1. VECTIBIX [Suspect]
     Active Substance: PANITUMUMAB
     Indication: Product used for unknown indication
     Route: 065
  2. VECTIBIX [Suspect]
     Active Substance: PANITUMUMAB
     Route: 065

REACTIONS (7)
  - Dizziness [Unknown]
  - Weight decreased [Unknown]
  - Liver disorder [Unknown]
  - Hypertension [Unknown]
  - Rash [Unknown]
  - Vomiting [Unknown]
  - Face oedema [Unknown]
